FAERS Safety Report 21224590 (Version 4)
Quarter: 2023Q1

REPORT INFORMATION
  Report Type: Report from Study
  Country: US (occurrence: US)
  Receive Date: 20220817
  Receipt Date: 20230212
  Transmission Date: 20230418
  Serious: Yes (Hospitalization, Other)
  Sender: FDA-Public Use
  Company Number: US-BEH-2022141605

PATIENT
  Age: 47 Year
  Sex: Female
  Weight: 87.075 kg

DRUGS (2)
  1. HIZENTRA [Suspect]
     Active Substance: HUMAN IMMUNOGLOBULIN G
     Indication: Primary immunodeficiency syndrome
     Dosage: 8 GRAM, QW
     Route: 058
     Dates: start: 20210527
  2. HIZENTRA [Suspect]
     Active Substance: HUMAN IMMUNOGLOBULIN G
     Indication: Chronic inflammatory demyelinating polyradiculoneuropathy
     Dosage: 9 GRAM, QW
     Route: 058
     Dates: start: 20210527

REACTIONS (17)
  - Pneumonia [Unknown]
  - Pneumothorax [Unknown]
  - No adverse event [Unknown]
  - Insurance issue [Unknown]
  - Infusion site bruising [Recovered/Resolved]
  - Infusion site extravasation [Recovered/Resolved]
  - Neuropathy peripheral [Recovered/Resolved]
  - Insurance issue [Recovered/Resolved]
  - Seizure [Recovered/Resolved]
  - Infusion site bruising [Not Recovered/Not Resolved]
  - Weight increased [Unknown]
  - Skin striae [Unknown]
  - Scar [Unknown]
  - Seizure [Unknown]
  - Epilepsy congenital [Unknown]
  - Post-traumatic stress disorder [Unknown]
  - Epidermal naevus syndrome [Unknown]

NARRATIVE: CASE EVENT DATE: 20211201
